FAERS Safety Report 15099828 (Version 1)
Quarter: 2018Q3

REPORT INFORMATION
  Report Type: Report from Study
  Country: None (occurrence: US)
  Receive Date: 20180703
  Receipt Date: 20180703
  Transmission Date: 20181010
  Serious: Yes (Hospitalization)
  Sender: FDA-Public Use
  Company Number: US-ABBVIE-17K-163-2172964-00

PATIENT
  Sex: Female

DRUGS (4)
  1. HUMIRA [Suspect]
     Active Substance: ADALIMUMAB
     Route: 058
     Dates: start: 20180309, end: 201803
  2. HUMIRA [Suspect]
     Active Substance: ADALIMUMAB
     Route: 058
     Dates: start: 201804
  3. HUMIRA [Suspect]
     Active Substance: ADALIMUMAB
     Indication: RHEUMATOID ARTHRITIS
     Route: 058
     Dates: start: 20170929, end: 20180223
  4. HUMIRA [Suspect]
     Active Substance: ADALIMUMAB
     Route: 058
     Dates: start: 20180309, end: 2018

REACTIONS (10)
  - Pneumonia [Unknown]
  - Night sweats [Unknown]
  - Musculoskeletal pain [Recovered/Resolved]
  - Peripheral swelling [Recovered/Resolved]
  - Musculoskeletal discomfort [Recovered/Resolved]
  - Peripheral swelling [Recovered/Resolved]
  - Swelling [Not Recovered/Not Resolved]
  - Pulmonary thrombosis [Unknown]
  - Vision blurred [Recovered/Resolved]
  - Vitreous floaters [Recovered/Resolved]

NARRATIVE: CASE EVENT DATE: 2017
